FAERS Safety Report 10379567 (Version 1)
Quarter: 2014Q3

REPORT INFORMATION
  Report Type: Spontaneous
  Country: ZA (occurrence: None)
  Receive Date: 20140808
  Receipt Date: 20140808
  Transmission Date: 20150326
  Serious: No
  Sender: FDA-Public Use
  Company Number: 7312497

PATIENT
  Sex: Female

DRUGS (1)
  1. EUTHYROX (LEVOTHYROXINE SODIUM) (LEVOTHYROXINE SODIUM) [Suspect]
     Active Substance: LEVOTHYROXINE SODIUM
     Indication: PRODUCT USED FOR UNKNOWN INDICATION

REACTIONS (3)
  - Tachycardia [None]
  - Hyperthyroidism [None]
  - Intentional product misuse [None]
